FAERS Safety Report 8414933-2 (Version None)
Quarter: 2012Q2

REPORT INFORMATION
  Report Type: 
  Country: None (occurrence: None)
  Receive Date: 20120601
  Receipt Date: 20120601
  Transmission Date: 20120825
  Serious: Yes (Life-Threatening, Hospitalization, Other)
  Sender: FDA-Public Use
  Company Number: None

PATIENT
  Sex: Female
  Weight: 79.3795 kg

DRUGS (3)
  1. PRILOSEC [Suspect]
     Indication: BARRETT'S OESOPHAGUS
     Dosage: 20 MG Q AM PO
     Route: 048
     Dates: start: 20120214, end: 20120314
  2. METOPROLOL TARTRATE [Concomitant]
  3. OMEPRAZOLE [Suspect]
     Dates: start: 20120314, end: 20120521

REACTIONS (20)
  - ARRHYTHMIA [None]
  - ELECTROCARDIOGRAM QRS COMPLEX PROLONGED [None]
  - ERYTHEMA [None]
  - MUSCULOSKELETAL CHEST PAIN [None]
  - BRADYCARDIA [None]
  - PALPITATIONS [None]
  - ANXIETY [None]
  - BREAST TENDERNESS [None]
  - DIARRHOEA [None]
  - MALAISE [None]
  - ATRIOVENTRICULAR BLOCK SECOND DEGREE [None]
  - PYREXIA [None]
  - ASTHENIA [None]
  - WHITE BLOOD CELLS URINE POSITIVE [None]
  - SINUS TACHYCARDIA [None]
  - VENTRICULAR EXTRASYSTOLES [None]
  - HYPERTENSION [None]
  - TREMOR [None]
  - PAIN [None]
  - KIDNEY INFECTION [None]
